FAERS Safety Report 5125653-4 (Version None)
Quarter: 2006Q4

REPORT INFORMATION
  Report Type: 
  Country: None (occurrence: None)
  Receive Date: 20061012
  Receipt Date: 20061007
  Transmission Date: 20070319
  Serious: Yes (Life-Threatening)
  Sender: FDA-Public Use
  Company Number: PHEH2006US12706

PATIENT
  Sex: Male

DRUGS (1)
  1. DIOVAN [Suspect]
     Indication: HYPERTENSION
     Dosage: UNK, UNK

REACTIONS (3)
  - DRUG INTERACTION [None]
  - SWOLLEN TONGUE [None]
  - TRACHEOSTOMY [None]
